FAERS Safety Report 4437345-5 (Version None)
Quarter: 2004Q3

REPORT INFORMATION
  Report Type: 
  Country: None (occurrence: None)
  Receive Date: 20040726
  Receipt Date: 20040412
  Transmission Date: 20050211
  Serious: No
  Sender: FDA-Public Use
  Company Number: USA040363269

PATIENT
  Age: 88 Year
  Sex: Female
  Weight: 61 kg

DRUGS (8)
  1. FORTEO [Suspect]
     Indication: OSTEOPOROSIS
     Dosage: 20 UG/1 DAY
     Dates: start: 20031201
  2. DURAGESIC [Concomitant]
  3. ALEVE [Concomitant]
  4. BEXTRA [Concomitant]
  5. DIOVAN [Concomitant]
  6. NORVASC [Concomitant]
  7. DITROPAN [Concomitant]
  8. LESCOL [Concomitant]

REACTIONS (11)
  - BALANCE DISORDER [None]
  - CHAPPED LIPS [None]
  - CHEST DISCOMFORT [None]
  - CONSTIPATION [None]
  - DIARRHOEA [None]
  - DIZZINESS [None]
  - DRY MOUTH [None]
  - DYSPNOEA [None]
  - ORAL PAIN [None]
  - SKIN IRRITATION [None]
  - VOMITING [None]
